FAERS Safety Report 16457359 (Version 1)
Quarter: 2019Q2

REPORT INFORMATION
  Report Type: Spontaneous
  Country: US (occurrence: US)
  Receive Date: 20190510
  Receipt Date: 20190510
  Transmission Date: 20190711
  Serious: Yes (Hospitalization)
  Sender: FDA-Public Use
  Company Number: None

PATIENT
  Age: 63 Year
  Sex: Female
  Weight: 66.2 kg

DRUGS (3)
  1. CARBOPLATIN. [Suspect]
     Active Substance: CARBOPLATIN
     Dates: end: 20190409
  2. CISPLATIN. [Suspect]
     Active Substance: CISPLATIN
     Dates: end: 20190110
  3. TAXOL [Suspect]
     Active Substance: PACLITAXEL
     Dates: end: 20190409

REACTIONS (3)
  - Paraesthesia [None]
  - Platelet count decreased [None]
  - Neutrophil count decreased [None]

NARRATIVE: CASE EVENT DATE: 20190427
